FAERS Safety Report 21003869 (Version 1)
Quarter: 2022Q2

REPORT INFORMATION
  Report Type: Spontaneous
  Country: US (occurrence: US)
  Receive Date: 20220624
  Receipt Date: 20220624
  Transmission Date: 20220721
  Serious: No
  Sender: FDA-Public Use
  Company Number: US-BIOGEN-2022BI01134091

PATIENT
  Sex: Female

DRUGS (1)
  1. TECFIDERA [Suspect]
     Active Substance: DIMETHYL FUMARATE
     Indication: Product used for unknown indication

REACTIONS (5)
  - Headache [Unknown]
  - Neuralgia [Unknown]
  - Malaise [Unknown]
  - Adverse drug reaction [Unknown]
  - Alopecia [Unknown]
